FAERS Safety Report 21466974 (Version 2)
Quarter: 2022Q4

REPORT INFORMATION
  Report Type: Report from Study
  Country: US (occurrence: US)
  Receive Date: 20221017
  Receipt Date: 20221128
  Transmission Date: 20230113
  Serious: Yes (Other)
  Sender: FDA-Public Use
  Company Number: US-HORIZON THERAPEUTICS-HZN-2022-007948

PATIENT

DRUGS (10)
  1. KRYSTEXXA [Suspect]
     Active Substance: PEGLOTICASE
     Indication: Gout
     Dosage: 8 MG, EVERY 2 WEEKS (1ST INFUSION)
     Route: 042
     Dates: start: 20220624
  2. KRYSTEXXA [Suspect]
     Active Substance: PEGLOTICASE
     Dosage: 8 MG, EVERY 2 WEEKS (2ND INFUSION)
     Route: 042
     Dates: start: 20220707
  3. KRYSTEXXA [Suspect]
     Active Substance: PEGLOTICASE
     Dosage: 8 MG, EVERY 2 WEEKS (3RD INFUSION)
     Route: 042
     Dates: start: 20220722
  4. KRYSTEXXA [Suspect]
     Active Substance: PEGLOTICASE
     Dosage: 8 MG, EVERY 2 WEEKS (4TH INFUSION)
     Route: 042
     Dates: start: 20220805
  5. KRYSTEXXA [Suspect]
     Active Substance: PEGLOTICASE
     Dosage: 8 MG, EVERY 2 WEEKS (5TH INFUSION)
     Route: 042
     Dates: start: 20220819
  6. KRYSTEXXA [Suspect]
     Active Substance: PEGLOTICASE
     Dosage: 8 MG, EVERY 2 WEEKS (6TH INFUSION)
     Route: 042
     Dates: start: 20220902
  7. KRYSTEXXA [Suspect]
     Active Substance: PEGLOTICASE
     Dosage: 8 MG, EVERY 2 WEEKS (7TH INFUSION)
     Route: 042
     Dates: start: 20220916
  8. KRYSTEXXA [Suspect]
     Active Substance: PEGLOTICASE
     Dosage: 8 MG, EVERY 2 WEEKS (8TH INFUSION)
     Route: 042
     Dates: start: 20221021
  9. KRYSTEXXA [Suspect]
     Active Substance: PEGLOTICASE
     Dosage: 8 MG, EVERY 2 WEEKS (9TH INFUSION)
     Route: 042
     Dates: start: 20221104
  10. KRYSTEXXA [Suspect]
     Active Substance: PEGLOTICASE
     Dosage: 8 MG, EVERY 2 WEEKS (10TH INFUSION)
     Route: 042
     Dates: start: 20221118

REACTIONS (3)
  - Transient ischaemic attack [Recovered/Resolved]
  - Sinusitis [Recovered/Resolved]
  - Conjunctivitis [Recovered/Resolved]

NARRATIVE: CASE EVENT DATE: 20220101
